FAERS Safety Report 9813136 (Version 1)
Quarter: 2014Q1

REPORT INFORMATION
  Report Type: Spontaneous
  Country: IN (occurrence: None)
  Receive Date: 20140109
  Receipt Date: 20140109
  Transmission Date: 20141002
  Serious: Yes (Hospitalization)
  Sender: FDA-Public Use
  Company Number: 2013HINLIT0349

PATIENT
  Age: 56 Year
  Sex: Male

DRUGS (3)
  1. LEVETIRACETAM [Suspect]
     Indication: STATUS EPILEPTICUS
     Route: 042
  2. PHENYTOIN (PHENYTOIN) [Concomitant]
  3. VALPROATE (VALPROATE) [Concomitant]

REACTIONS (5)
  - Toxic encephalopathy [None]
  - Gliosis [None]
  - Creatinine renal clearance decreased [None]
  - Demyelination [None]
  - Partial seizures [None]
